FAERS Safety Report 8449322-8 (Version None)
Quarter: 2012Q2

REPORT INFORMATION
  Report Type: 
  Country: None (occurrence: None)
  Receive Date: 20120619
  Receipt Date: 20120604
  Transmission Date: 20120825
  Serious: Yes (Life-Threatening, Other)
  Sender: FDA-Public Use
  Company Number: CHPA2012US011837

PATIENT
  Age: 73 Year
  Sex: Female

DRUGS (1)
  1. MYOFLEX [Suspect]
     Indication: ARTHRITIS
     Dosage: A LITTLE BIT, UNK
     Route: 048

REACTIONS (13)
  - DEMENTIA ALZHEIMER'S TYPE [None]
  - ERYTHEMA [None]
  - GAIT DISTURBANCE [None]
  - PAIN OF SKIN [None]
  - CEREBROVASCULAR ACCIDENT [None]
  - CARDIAC DISORDER [None]
  - PRURITUS [None]
  - LACERATION [None]
  - SKIN DISORDER [None]
  - PARKINSON'S DISEASE [None]
  - FEELING ABNORMAL [None]
  - POOR PERIPHERAL CIRCULATION [None]
  - OFF LABEL USE [None]
